FAERS Safety Report 16574846 (Version 1)
Quarter: 2019Q3

REPORT INFORMATION
  Report Type: Report from Study
  Country: GB (occurrence: GB)
  Receive Date: 20190715
  Receipt Date: 20190715
  Transmission Date: 20191004
  Serious: Yes (Other)
  Sender: FDA-Public Use
  Company Number: GB-SAMSUNG BIOEPIS-SB-2019-07394

PATIENT
  Sex: Female

DRUGS (1)
  1. BENEPALI [Suspect]
     Active Substance: ETANERCEPT
     Indication: RHEUMATOID ARTHRITIS
     Route: 058
     Dates: start: 20181224

REACTIONS (7)
  - Drug ineffective [Unknown]
  - Cataract [Recovered/Resolved]
  - Pain [Not Recovered/Not Resolved]
  - Immunosuppression [Unknown]
  - Rheumatoid arthritis [Unknown]
  - Night sweats [Unknown]
  - Pain in extremity [Not Recovered/Not Resolved]
